FAERS Safety Report 4973091-7 (Version None)
Quarter: 2006Q2

REPORT INFORMATION
  Report Type: 
  Country: None (occurrence: None)
  Receive Date: 20060414
  Receipt Date: 20060224
  Transmission Date: 20061013
  Serious: Yes (Other)
  Sender: FDA-Public Use
  Company Number: AU-ROCHE-437733

PATIENT
  Age: 66 Year
  Sex: Female
  Weight: 69 kg

DRUGS (6)
  1. XENICAL [Suspect]
     Indication: WEIGHT CONTROL
     Route: 048
     Dates: start: 20060216, end: 20060217
  2. PARNATE [Concomitant]
     Dates: start: 19650615, end: 20060301
  3. STELAZINE [Concomitant]
     Dates: start: 19650615
  4. DILTIAZEM [Concomitant]
  5. PRAVACHOL [Concomitant]
  6. DIAFORMIN [Concomitant]

REACTIONS (1)
  - HALLUCINATION, VISUAL [None]
